FAERS Safety Report 9357790 (Version 1)
Quarter: 2013Q2

REPORT INFORMATION
  Report Type: Spontaneous
  Country: US (occurrence: US)
  Receive Date: 20130620
  Receipt Date: 20130620
  Transmission Date: 20140414
  Serious: Yes (Hospitalization)
  Sender: FDA-Public Use
  Company Number: US-JNJFOC-20130607956

PATIENT
  Age: 69 Year
  Sex: Male

DRUGS (1)
  1. BENADRYL [Suspect]
     Indication: DERMATITIS CONTACT
     Route: 065
     Dates: start: 20120421, end: 20120423

REACTIONS (3)
  - Anuria [Unknown]
  - Heart rate irregular [Unknown]
  - Off label use [Unknown]
